FAERS Safety Report 13970101 (Version 1)
Quarter: 2017Q3

REPORT INFORMATION
  Report Type: Spontaneous
  Country: US (occurrence: US)
  Receive Date: 20170914
  Receipt Date: 20170914
  Transmission Date: 20171128
  Serious: No
  Sender: FDA-Public Use
  Company Number: US-ASTELLAS-2017US000837

PATIENT
  Sex: Male

DRUGS (1)
  1. XTANDI [Suspect]
     Active Substance: ENZALUTAMIDE
     Indication: PRODUCT USED FOR UNKNOWN INDICATION
     Dosage: 80 MG (TWO TABLETS), ONCE DAILY
     Route: 048
     Dates: end: 201612

REACTIONS (3)
  - Dysgeusia [Unknown]
  - Feeding disorder [Unknown]
  - Underdose [Unknown]
